FAERS Safety Report 18487443 (Version 1)
Quarter: 2020Q4

REPORT INFORMATION
  Report Type: Spontaneous
  Country: DE (occurrence: DE)
  Receive Date: 20201111
  Receipt Date: 20201111
  Transmission Date: 20210114
  Serious: Yes (Other)
  Sender: FDA-Public Use
  Company Number: DE-MDD US OPERATIONS-E2B_00003552

PATIENT
  Age: 70 Year
  Sex: Male

DRUGS (1)
  1. XADAGO [Suspect]
     Active Substance: SAFINAMIDE MESYLATE
     Indication: PARKINSON^S DISEASE
     Dosage: NOT PROVIDED
     Route: 048

REACTIONS (3)
  - Restlessness [Unknown]
  - Tremor [Unknown]
  - Hypertensive crisis [Unknown]
